FAERS Safety Report 9718116 (Version 1)
Quarter: 2013Q4

REPORT INFORMATION
  Report Type: Not Available
  Country: US (occurrence: US)
  Receive Date: 20131125
  Receipt Date: 20131125
  Transmission Date: 20140711
  Serious: No
  Sender: FDA-Public Use
  Company Number: US-VIVUS-2013V1000477

PATIENT
  Age: 70 Year
  Sex: Male
  Weight: 113.5 kg

DRUGS (7)
  1. QSYMIA 3.75MG/23MG [Suspect]
     Indication: WEIGHT DECREASED
     Route: 048
     Dates: start: 201306, end: 201306
  2. QSYMIA 7.5MG/46MG [Suspect]
     Indication: WEIGHT DECREASED
     Route: 048
     Dates: start: 201306
  3. PROZAC [Concomitant]
     Indication: DEPRESSION
     Route: 048
     Dates: start: 1993
  4. BUSPAR [Concomitant]
     Indication: ANXIETY
     Route: 048
  5. BUSPAR [Concomitant]
     Indication: DEPRESSION
  6. BENICAR [Concomitant]
     Indication: BLOOD PRESSURE
     Route: 048
     Dates: start: 2011
  7. CELBREX [Concomitant]
     Indication: ARTHRITIS
     Route: 048
     Dates: start: 1998

REACTIONS (4)
  - Eustachian tube obstruction [Not Recovered/Not Resolved]
  - Ear discomfort [Not Recovered/Not Resolved]
  - Deafness [Not Recovered/Not Resolved]
  - Dizziness [Not Recovered/Not Resolved]
